FAERS Safety Report 9099069 (Version 1)
Quarter: 2013Q1

REPORT INFORMATION
  Report Type: Report from Study
  Country: AU (occurrence: AU)
  Receive Date: 20130214
  Receipt Date: 20130214
  Transmission Date: 20140127
  Serious: Yes (Other)
  Sender: FDA-Public Use
  Company Number: AU-ROCHE-1191057

PATIENT
  Age: 58 Year
  Sex: Male

DRUGS (2)
  1. ACTEMRA [Suspect]
     Indication: RHEUMATOID ARTHRITIS
     Route: 042
     Dates: start: 20120829
  2. PANADEINE FORTE [Concomitant]
     Indication: PAIN
     Route: 048

REACTIONS (2)
  - Procedural nausea [Recovered/Resolved]
  - Procedural vomiting [Recovered/Resolved]
